FAERS Safety Report 6106153-1 (Version None)
Quarter: 2009Q1

REPORT INFORMATION
  Report Type: 
  Country: None (occurrence: None)
  Receive Date: 20090306
  Receipt Date: 20090303
  Transmission Date: 20090719
  Serious: Yes (Death, Other)
  Sender: FDA-Public Use
  Company Number: PHHY2009PE08084

PATIENT
  Sex: Female

DRUGS (2)
  1. VOLTAREN [Suspect]
     Route: 064
  2. NIFEDIPINE [Concomitant]
     Route: 064

REACTIONS (3)
  - DRUG EXPOSURE DURING PREGNANCY [None]
  - PREMATURE SEPARATION OF PLACENTA [None]
  - UMBILICAL CORD AROUND NECK [None]
